FAERS Safety Report 24888082 (Version 1)
Quarter: 2025Q1

REPORT INFORMATION
  Report Type: Spontaneous
  Country: IT (occurrence: IT)
  Receive Date: 20250127
  Receipt Date: 20250127
  Transmission Date: 20250409
  Serious: Yes (Hospitalization)
  Sender: BOEHRINGER INGELHEIM
  Company Number: IT-BoehringerIngelheim-2025-BI-001834

PATIENT
  Age: 80 Year
  Sex: Male

DRUGS (1)
  1. PRADAXA [Suspect]
     Active Substance: DABIGATRAN ETEXILATE MESYLATE
     Indication: Atrial fibrillation
     Dates: start: 20250111, end: 20250111

REACTIONS (1)
  - Activated partial thromboplastin time prolonged [Recovered/Resolved]

NARRATIVE: CASE EVENT DATE: 20250111
